FAERS Safety Report 19120736 (Version 2)
Quarter: 2022Q2

REPORT INFORMATION
  Report Type: Spontaneous
  Country: US (occurrence: US)
  Receive Date: 20210412
  Receipt Date: 20220427
  Transmission Date: 20220721
  Serious: No
  Sender: FDA-Public Use
  Company Number: US-ALLERGAN-2108465US

PATIENT
  Age: 76 Year
  Sex: Female

DRUGS (1)
  1. TIMOLOL MALEATE [Suspect]
     Active Substance: TIMOLOL MALEATE
     Indication: Glaucoma
     Dosage: 2 GTT, QD
     Route: 047

REACTIONS (3)
  - Accidental exposure to product [Unknown]
  - Product dispensing error [Unknown]
  - Product container issue [Unknown]
